FAERS Safety Report 9521590 (Version 1)
Quarter: 2013Q3

REPORT INFORMATION
  Report Type: Report from Study
  Country: AU (occurrence: AU)
  Receive Date: 20130913
  Receipt Date: 20130913
  Transmission Date: 20140515
  Serious: Yes (Hospitalization, Other)
  Sender: FDA-Public Use
  Company Number: AU-BAYER-2013-110644

PATIENT
  Age: 76 Year
  Sex: Male

DRUGS (1)
  1. REGORAFENIB [Suspect]
     Indication: GASTROINTESTINAL STROMAL CANCER
     Dosage: 40 MG, QID
     Route: 048
     Dates: start: 20130302, end: 20130315

REACTIONS (2)
  - Cardiomyopathy [None]
  - Rash [None]
